FAERS Safety Report 14832894 (Version 1)
Quarter: 2018Q2

REPORT INFORMATION
  Report Type: Spontaneous
  Country: AU (occurrence: AU)
  Receive Date: 20180501
  Receipt Date: 20180501
  Transmission Date: 20180711
  Serious: Yes (Hospitalization)
  Sender: FDA-Public Use
  Company Number: AU-LPDUSPRD-20180693

PATIENT
  Age: 88 Year
  Sex: Female
  Weight: 70 kg

DRUGS (1)
  1. FERINJECT [Suspect]
     Active Substance: FERRIC CARBOXYMALTOSE
     Dosage: FIRST TIME (500 MG)
     Route: 040
     Dates: start: 20170926

REACTIONS (4)
  - Acute myocardial infarction [Recovered/Resolved]
  - Concomitant disease aggravated [Recovered/Resolved]
  - Dysarthria [Unknown]
  - Hemiparesis [Unknown]

NARRATIVE: CASE EVENT DATE: 20171010
